FAERS Safety Report 9044035 (Version 1)
Quarter: 2013Q1

REPORT INFORMATION
  Report Type: Spontaneous
  Country: US (occurrence: US)
  Receive Date: 20130130
  Receipt Date: 20130130
  Transmission Date: 20140127
  Serious: No
  Sender: FDA-Public Use
  Company Number: US-009507513-1301USA013027

PATIENT
  Sex: Female

DRUGS (2)
  1. PEGINTRON [Suspect]
     Indication: HEPATITIS C
     Dosage: UNK
     Dates: start: 20130125
  2. RIBAVIRIN [Suspect]
     Indication: HEPATITIS C
     Dosage: UNK
     Dates: start: 20130125

REACTIONS (8)
  - Parosmia [Unknown]
  - Muscle tightness [Unknown]
  - Feeling of body temperature change [Unknown]
  - Dysgeusia [Unknown]
  - Pain [Unknown]
  - Chills [Unknown]
  - Fatigue [Unknown]
  - Headache [Recovered/Resolved]
